FAERS Safety Report 6430981-6 (Version None)
Quarter: 2009Q4

REPORT INFORMATION
  Report Type: 
  Country: None (occurrence: None)
  Receive Date: 20091104
  Receipt Date: 20091025
  Transmission Date: 20100525
  Serious: Yes (Hospitalization)
  Sender: FDA-Public Use
  Company Number: DSA_41890_2009

PATIENT
  Sex: Female

DRUGS (5)
  1. XENAZINE [Suspect]
     Indication: EXTRAPYRAMIDAL DISORDER
     Dosage: 50 MG BID ORAL
     Route: 048
     Dates: start: 20090801
  2. CLOZARIL [Concomitant]
  3. LIPITOR [Concomitant]
  4. FOLIC ACID [Concomitant]
  5. VITAMIN E /0549490/ [Concomitant]

REACTIONS (4)
  - DEPRESSED LEVEL OF CONSCIOUSNESS [None]
  - FALL [None]
  - PULMONARY EMBOLISM [None]
  - SKIN LACERATION [None]
